FAERS Safety Report 8817398 (Version 1)
Quarter: 2012Q4

REPORT INFORMATION
  Report Type: 
  Country: US (occurrence: US)
  Receive Date: 20121004
  Receipt Date: 20121004
  Transmission Date: 20130627
  Serious: Yes (Other)
  Sender: FDA-Public Use
  Company Number: US-PFIZER INC-2012244303

PATIENT
  Age: 50 Year
  Sex: Female
  Weight: 92.97 kg

DRUGS (3)
  1. LYRICA [Suspect]
     Indication: FIBROMYALGIA
     Dosage: 75 mg, 3x/day
     Route: 048
     Dates: start: 2009, end: 2012
  2. LYRICA [Suspect]
     Indication: SYSTEMIC LUPUS ERYTHEMATOSUS
  3. NEXIUM [Concomitant]
     Indication: GASTRIC DISORDER

REACTIONS (5)
  - Gait disturbance [Unknown]
  - Sinusitis [Unknown]
  - Dysstasia [Unknown]
  - Nervous system disorder [Unknown]
  - Blood glucose increased [Unknown]
